FAERS Safety Report 7825814-7 (Version None)
Quarter: 2011Q4

REPORT INFORMATION
  Report Type: 
  Country: None (occurrence: None)
  Receive Date: 20111019
  Receipt Date: 20111006
  Transmission Date: 20120403
  Serious: Yes (Hospitalization)
  Sender: FDA-Public Use
  Company Number: CA-ELI_LILLY_AND_COMPANY-CA201110001652

PATIENT
  Age: 53 Year
  Sex: Female

DRUGS (14)
  1. NITRO                              /00003201/ [Concomitant]
  2. PREDNISONE [Concomitant]
  3. CRESTOR [Concomitant]
  4. IMODIUM [Concomitant]
  5. MORPHINE SULFATE [Concomitant]
  6. NYSTATIN [Concomitant]
  7. GRAVOL TAB [Concomitant]
  8. FORTEO [Suspect]
     Indication: OSTEOPOROSIS
     Dosage: 20 UG, QD
     Route: 058
     Dates: start: 20091009
  9. FORTEO [Suspect]
     Dosage: 20 UG, QD
     Route: 058
     Dates: start: 20110909, end: 20111007
  10. DILANTIN [Concomitant]
  11. ACETAMINOPHEN [Concomitant]
  12. VITAMIN B-12 [Concomitant]
  13. CLONAZEPAM [Concomitant]
  14. PLAVIX [Concomitant]

REACTIONS (6)
  - RENAL HAEMORRHAGE [None]
  - RENAL CYST [None]
  - BLOOD URINE PRESENT [None]
  - MELAENA [None]
  - KIDNEY INFECTION [None]
  - MEDICATION ERROR [None]
